FAERS Safety Report 7210421-X (Version None)
Quarter: 2011Q1

REPORT INFORMATION
  Report Type: 
  Country: None (occurrence: None)
  Receive Date: 20110105
  Receipt Date: 20101129
  Transmission Date: 20110831
  Serious: Yes (Hospitalization)
  Sender: FDA-Public Use
  Company Number: US-BAYER-201015378NA

PATIENT
  Sex: Female
  Weight: 77 kg

DRUGS (10)
  1. YASMIN [Suspect]
     Indication: MENSTRUAL CYCLE MANAGEMENT
  2. VENLAFAXINE [Concomitant]
     Indication: HOT FLUSH
  3. ACETAMINOPHEN [Concomitant]
     Indication: HEADACHE
     Dosage: VARIOUS
  4. YASMIN [Suspect]
     Indication: MUSCLE SPASMS
     Route: 048
     Dates: start: 20050701, end: 20070222
  5. RESTORIL [Concomitant]
  6. LORCET-HD [Concomitant]
  7. IBUPROFEN [Concomitant]
     Indication: PAIN IN EXTREMITY
     Dosage: VARIOUS
  8. PHENERGAN [Concomitant]
  9. DEMEROL [Concomitant]
  10. MORPHINE [Concomitant]
     Indication: PAIN MANAGEMENT

REACTIONS (4)
  - OEDEMA PERIPHERAL [None]
  - DEEP VEIN THROMBOSIS [None]
  - PAIN IN EXTREMITY [None]
  - SKIN DISCOLOURATION [None]
